FAERS Safety Report 9131818 (Version 2)
Quarter: 2013Q2

REPORT INFORMATION
  Report Type: Report from Study
  Country: BR (occurrence: BR)
  Receive Date: 20130301
  Receipt Date: 20130412
  Transmission Date: 20140414
  Serious: Yes (Other)
  Sender: FDA-Public Use
  Company Number: BR-ABBOTT-13P-020-1056735-00

PATIENT
  Age: 57 Year
  Sex: Female
  Weight: 85 kg

DRUGS (5)
  1. HUMIRA [Suspect]
     Indication: RHEUMATOID ARTHRITIS
     Route: 058
     Dates: start: 2010
  2. METHOTREXATE [Suspect]
     Indication: RHEUMATOID ARTHRITIS
     Route: 048
  3. LOSARTAN [Concomitant]
     Indication: BLOOD PRESSURE ABNORMAL
     Route: 048
  4. HYDROCHLOROTHIAZIDE [Concomitant]
     Indication: BLOOD PRESSURE
     Dosage: 1 TAB DAILY
     Route: 048
  5. BUSONID [Concomitant]
     Indication: RESPIRATORY DISORDER
     Route: 045

REACTIONS (16)
  - Appendicitis [Unknown]
  - Pain [Recovering/Resolving]
  - Weight bearing difficulty [Recovering/Resolving]
  - Fatigue [Recovering/Resolving]
  - Hyperhidrosis [Recovering/Resolving]
  - Pruritus [Recovering/Resolving]
  - Hyperaesthesia [Recovering/Resolving]
  - Rash macular [Recovering/Resolving]
  - Hypersensitivity [Recovering/Resolving]
  - Dyspnoea [Recovering/Resolving]
  - Sinusitis [Recovering/Resolving]
  - Blood pressure fluctuation [Recovering/Resolving]
  - Mobility decreased [Recovering/Resolving]
  - Malaise [Unknown]
  - Parosmia [Unknown]
  - Arthralgia [Unknown]
